FAERS Safety Report 8820877 (Version 2)
Quarter: 2012Q4

REPORT INFORMATION
  Report Type: Report from Study
  Country: GB (occurrence: GB)
  Receive Date: 20121002
  Receipt Date: 20121015
  Transmission Date: 20130627
  Serious: Yes (Hospitalization)
  Sender: FDA-Public Use
  Company Number: GB-PFIZER INC-2012238858

PATIENT
  Age: 56 Year
  Sex: Female

DRUGS (5)
  1. EPIRUBICIN HCL [Suspect]
     Indication: BREAST CANCER
  2. CYCLOPHOSPHAMIDE [Suspect]
  3. FLUOROURACIL [Suspect]
     Indication: BREAST CANCER
  4. BLINDED THERAPY [Suspect]
     Indication: BREAST CANCER
  5. DOCETAXEL [Concomitant]
     Indication: BREAST CANCER

REACTIONS (1)
  - Neutropenic sepsis [Recovering/Resolving]
